FAERS Safety Report 6681764-3 (Version None)
Quarter: 2010Q2

REPORT INFORMATION
  Report Type: 
  Country: None (occurrence: None)
  Receive Date: 20100414
  Receipt Date: 20100406
  Transmission Date: 20101027
  Serious: Yes (Other)
  Sender: FDA-Public Use
  Company Number: US-GENENTECH-297943

PATIENT
  Sex: Female
  Weight: 74.376 kg

DRUGS (11)
  1. XOLAIR [Suspect]
     Indication: ASTHMA
     Dosage: 150 MG, 1/MONTH
     Route: 058
     Dates: start: 20070103, end: 20100101
  2. XOLAIR [Suspect]
     Indication: CHRONIC SINUSITIS
  3. QVAR 40 [Concomitant]
     Indication: ASTHMA
     Dosage: 2 PUFF, BID
  4. ADVAIR DISKUS 100/50 [Concomitant]
     Indication: DRUG USE FOR UNKNOWN INDICATION
     Dosage: UNK
     Route: 048
  5. ZYRTEC [Concomitant]
     Indication: CHRONIC SINUSITIS
     Dosage: 10 MG, QPM
     Route: 048
  6. PROAIR HFA [Concomitant]
     Indication: ASTHMA
     Dosage: 2 PUFF, PRN
  7. NASACORT [Concomitant]
     Indication: CHRONIC SINUSITIS
     Dosage: 1 UNK, QD
  8. PREDNISOLONE [Concomitant]
     Indication: CHRONIC SINUSITIS
     Dosage: 50 MG, UNK
  9. PRILOSEC [Concomitant]
     Indication: GASTROOESOPHAGEAL REFLUX DISEASE
     Dosage: UNK
  10. ALBUTEROL SULFATE AUTOHALER [Concomitant]
     Indication: ASTHMA
     Dosage: UNK
  11. XOPENEX [Concomitant]
     Indication: ASTHMA
     Dosage: UNK

REACTIONS (7)
  - ASTHMA [None]
  - BLOOD GLUCOSE INCREASED [None]
  - COUGH [None]
  - DYSPNOEA [None]
  - LYMPHOCYTE COUNT INCREASED [None]
  - NEUTROPHIL COUNT INCREASED [None]
  - WHITE BLOOD CELL COUNT INCREASED [None]
